FAERS Safety Report 10375585 (Version 1)
Quarter: 2014Q3

REPORT INFORMATION
  Report Type: Spontaneous
  Country: HR (occurrence: HR)
  Receive Date: 20140811
  Receipt Date: 20140811
  Transmission Date: 20150326
  Serious: Yes (Other)
  Sender: FDA-Public Use
  Company Number: HR-TEVA-498718ISR

PATIENT
  Sex: Male
  Weight: 78 kg

DRUGS (3)
  1. NORMABEL [Concomitant]
     Active Substance: DIAZEPAM
     Route: 048
  2. ISOPTIN [Suspect]
     Active Substance: VERAPAMIL HYDROCHLORIDE
     Route: 048
     Dates: start: 2010, end: 2014
  3. LANITOP [Concomitant]
     Active Substance: METILDIGOXIN
     Route: 048

REACTIONS (2)
  - Oedema mucosal [Recovering/Resolving]
  - Joint swelling [Recovering/Resolving]

NARRATIVE: CASE EVENT DATE: 2013
